FAERS Safety Report 7835449-8 (Version None)
Quarter: 2011Q4

REPORT INFORMATION
  Report Type: 
  Country: None (occurrence: None)
  Receive Date: 20111024
  Receipt Date: 20111013
  Transmission Date: 20120403
  Serious: Yes (Other)
  Sender: FDA-Public Use
  Company Number: JP-ASTRAZENECA-2011SE63470

PATIENT
  Age: 70 Year
  Sex: Male

DRUGS (1)
  1. MEROPENEM [Suspect]
     Indication: INFECTION
     Dosage: 1 GR

REACTIONS (2)
  - PSEUDOMEMBRANOUS COLITIS [None]
  - MEGACOLON [None]
